FAERS Safety Report 22055167 (Version 1)
Quarter: 2023Q1

REPORT INFORMATION
  Report Type: Spontaneous
  Country: DE (occurrence: DE)
  Receive Date: 20230302
  Receipt Date: 20230302
  Transmission Date: 20230417
  Serious: Yes (Death)
  Sender: FDA-Public Use
  Company Number: DE-DCGMA-23200498

PATIENT
  Age: 14 Year
  Sex: Male

DRUGS (1)
  1. QUETIAPINE [Suspect]
     Active Substance: QUETIAPINE
     Indication: Depression
     Dosage: UNK (3 X TGL)
     Route: 048
     Dates: start: 202301

REACTIONS (2)
  - Completed suicide [Fatal]
  - Psychomotor hyperactivity [Unknown]

NARRATIVE: CASE EVENT DATE: 20230208
